FAERS Safety Report 21990758 (Version 1)
Quarter: 2023Q1

REPORT INFORMATION
  Report Type: Spontaneous
  Country: US (occurrence: US)
  Receive Date: 20230214
  Receipt Date: 20230214
  Transmission Date: 20230418
  Serious: No
  Sender: FDA-Public Use
  Company Number: US-ANIPHARMA-2022-US-027129

PATIENT
  Age: 76 Year
  Sex: Female
  Weight: 48.99 kg

DRUGS (4)
  1. CORTICOTROPIN [Suspect]
     Active Substance: CORTICOTROPIN
     Indication: Rheumatoid arthritis
     Dosage: 80 UNITS SUBCUTANEOUSLY 2X/WEEK
     Route: 058
     Dates: start: 20221110
  2. ELIQUIS [Concomitant]
     Active Substance: APIXABAN
     Route: 065
  3. SOTALOL [Concomitant]
     Active Substance: SOTALOL
     Route: 065
  4. METFORMIN [Concomitant]
     Active Substance: METFORMIN HYDROCHLORIDE
     Route: 065

REACTIONS (3)
  - Paraesthesia [Recovered/Resolved]
  - Palpitations [Recovered/Resolved]
  - Heart rate increased [Recovered/Resolved]

NARRATIVE: CASE EVENT DATE: 20221112
